FAERS Safety Report 22292628 (Version 1)
Quarter: 2023Q2

REPORT INFORMATION
  Report Type: Spontaneous
  Country: RO (occurrence: RO)
  Receive Date: 20230508
  Receipt Date: 20230508
  Transmission Date: 20230721
  Serious: Yes (Other)
  Sender: FDA-Public Use
  Company Number: RO-PFIZER INC-PV202300079256

PATIENT
  Age: 26 Year
  Sex: Male

DRUGS (8)
  1. INOTUZUMAB OZOGAMICIN [Suspect]
     Active Substance: INOTUZUMAB OZOGAMICIN
     Indication: Acute lymphocytic leukaemia
     Dosage: 0.8 MG/M2, Z1
     Route: 042
     Dates: start: 202201
  2. INOTUZUMAB OZOGAMICIN [Suspect]
     Active Substance: INOTUZUMAB OZOGAMICIN
     Dosage: 0.5 MG/M2; Z8, 15
  3. INOTUZUMAB OZOGAMICIN [Suspect]
     Active Substance: INOTUZUMAB OZOGAMICIN
     Dosage: UNK UNK, C2
     Dates: start: 202202
  4. INOTUZUMAB OZOGAMICIN [Suspect]
     Active Substance: INOTUZUMAB OZOGAMICIN
     Dosage: UNK UNK, C3
     Dates: start: 202203
  5. PONATINIB [Suspect]
     Active Substance: PONATINIB
     Indication: Acute lymphocytic leukaemia
     Dosage: 30 MG, DAILY
     Dates: start: 202201
  6. PONATINIB [Suspect]
     Active Substance: PONATINIB
     Dosage: 30 MG, DAILY
     Dates: start: 202202
  7. PONATINIB [Suspect]
     Active Substance: PONATINIB
     Dosage: 15 MG, DAILY
     Dates: start: 202203
  8. PONATINIB [Suspect]
     Active Substance: PONATINIB
     Dosage: 30 MG, DAILY
     Dates: start: 202205

REACTIONS (8)
  - Interstitial lung disease [Recovered/Resolved]
  - Pneumonia viral [Recovered/Resolved]
  - Cholestasis [Unknown]
  - Pneumoperitoneum [Unknown]
  - Thrombocytopenia [Recovered/Resolved with Sequelae]
  - Thrombocytopenia [Not Recovered/Not Resolved]
  - Thrombocytopenia [Recovered/Resolved]
  - Neutropenia [Recovered/Resolved]

NARRATIVE: CASE EVENT DATE: 20220101
